FAERS Safety Report 25319883 (Version 3)
Quarter: 2025Q3

REPORT INFORMATION
  Report Type: Report from Study
  Country: JP (occurrence: JP)
  Receive Date: 20250515
  Receipt Date: 20250702
  Transmission Date: 20251020
  Serious: Yes (Hospitalization)
  Sender: EISAI
  Company Number: JP-Eisai-202501566_LEQ_P_1

PATIENT
  Age: 76 Year
  Sex: Female
  Weight: 45 kg

DRUGS (1)
  1. LEQEMBI [Suspect]
     Active Substance: LECANEMAB-IRMB
     Indication: Dementia
     Route: 042
     Dates: start: 20250417, end: 20250501

REACTIONS (3)
  - Infusion related reaction [Recovered/Resolved]
  - Gait disturbance [Recovered/Resolved]
  - C-reactive protein increased [Recovered/Resolved]

NARRATIVE: CASE EVENT DATE: 20250417
